FAERS Safety Report 19174870 (Version 1)
Quarter: 2021Q2

REPORT INFORMATION
  Report Type: Spontaneous
  Country: US (occurrence: US)
  Receive Date: 20210423
  Receipt Date: 20210423
  Transmission Date: 20210717
  Serious: No
  Sender: FDA-Public Use
  Company Number: US-ASTRAZENECA-2021A245609

PATIENT
  Sex: Male
  Weight: 102.1 kg

DRUGS (2)
  1. SYMBICORT [Suspect]
     Active Substance: BUDESONIDE\FORMOTEROL FUMARATE DIHYDRATE
     Indication: LUNG DISORDER
     Dosage: 160 OF 4.5 MCG 2 PUFFS TWICE A DAY
     Route: 055
     Dates: start: 202103
  2. BUDESONIDE AND FORMOTEROL AEROSOL, GENERIC SYMBICORT [Suspect]
     Active Substance: BUDESONIDE\FORMOTEROL FUMARATE
     Indication: LUNG DISORDER
     Dosage: 2 PUFFS TWICE A DAY, 160 OF 4.5 MCG
     Route: 055
     Dates: start: 202102

REACTIONS (4)
  - Dyspnoea [Not Recovered/Not Resolved]
  - Intentional device misuse [Recovered/Resolved]
  - Device issue [Unknown]
  - Weight fluctuation [Not Recovered/Not Resolved]
